FAERS Safety Report 11491849 (Version 1)
Quarter: 2015Q3

REPORT INFORMATION
  Report Type: Spontaneous
  Country: US (occurrence: None)
  Receive Date: 20150909
  Receipt Date: 20150909
  Transmission Date: 20151125
  Serious: Yes (Life-Threatening, Hospitalization, Other)
  Sender: FDA-Public Use
  Company Number: None

PATIENT
  Age: 29 Year
  Sex: Female

DRUGS (1)
  1. TINDAZOLE [Suspect]
     Active Substance: TINIDAZOLE
     Indication: VAGINITIS BACTERIAL
     Dosage: TAKEN BY MOUTH
     Dates: start: 20130311, end: 20130313

REACTIONS (5)
  - Urticaria [None]
  - Pharyngeal oedema [None]
  - Dyspnoea [None]
  - Swelling face [None]
  - Swollen tongue [None]

NARRATIVE: CASE EVENT DATE: 20130315
